FAERS Safety Report 20377438 (Version 2)
Quarter: 2022Q1

REPORT INFORMATION
  Report Type: Spontaneous
  Country: US (occurrence: US)
  Receive Date: 20220126
  Receipt Date: 20220131
  Transmission Date: 20220424
  Serious: Yes (Other)
  Sender: FDA-Public Use
  Company Number: US-009507513-2201USA004067

PATIENT
  Sex: Male

DRUGS (2)
  1. PROVENTIL [Suspect]
     Active Substance: ALBUTEROL
     Indication: Dyspnoea
     Dosage: UNK
     Dates: start: 1992
  2. VENTOLIN [Suspect]
     Active Substance: ALBUTEROL SULFATE
     Dosage: UNK
     Dates: start: 1992

REACTIONS (1)
  - Atrial fibrillation [Unknown]

NARRATIVE: CASE EVENT DATE: 19920101
